FAERS Safety Report 12842451 (Version 3)
Quarter: 2016Q4

REPORT INFORMATION
  Report Type: Spontaneous
  Country: JP (occurrence: JP)
  Receive Date: 20161013
  Receipt Date: 20161106
  Transmission Date: 20170207
  Serious: Yes (Other)
  Sender: FDA-Public Use
  Company Number: JP-ASTRAZENECA-2016SF07120

PATIENT
  Age: 72 Year
  Sex: Male

DRUGS (5)
  1. ZOLADEX [Suspect]
     Active Substance: GOSERELIN ACETATE
     Indication: PROSTATE CANCER
     Route: 058
  2. LEUPLIN [Suspect]
     Active Substance: LEUPROLIDE ACETATE
     Indication: ANTIANDROGEN THERAPY
     Route: 058
     Dates: start: 20130707, end: 20130805
  3. CASODEX [Suspect]
     Active Substance: BICALUTAMIDE
     Indication: ANTIANDROGEN THERAPY
     Route: 048
     Dates: start: 20130623, end: 20130909
  4. CASODEX [Suspect]
     Active Substance: BICALUTAMIDE
     Indication: PROSTATE CANCER
     Route: 048
     Dates: start: 20130623, end: 20130909
  5. LEUPLIN [Suspect]
     Active Substance: LEUPROLIDE ACETATE
     Indication: PROSTATE CANCER
     Route: 058
     Dates: start: 20130707, end: 20130805

REACTIONS (3)
  - Malignant neoplasm progression [Recovering/Resolving]
  - Hepatic function abnormal [Recovering/Resolving]
  - Blood testosterone increased [Recovering/Resolving]

NARRATIVE: CASE EVENT DATE: 20130805
